FAERS Safety Report 8986339 (Version 1)
Quarter: 2012Q4

REPORT INFORMATION
  Report Type: Spontaneous
  Country: US (occurrence: None)
  Receive Date: 20121219
  Receipt Date: 20121219
  Transmission Date: 20130627
  Serious: Yes (Other)
  Sender: FDA-Public Use
  Company Number: None

PATIENT
  Age: 30 Year
  Sex: Female

DRUGS (2)
  1. ENBREL [Suspect]
     Dosage: 50mg 2 doses SQ  11/28 + 12/5
     Route: 058
     Dates: start: 20121128
  2. ENBREL [Suspect]
     Dates: start: 20121205

REACTIONS (3)
  - Injection site reaction [None]
  - Dyspnoea [None]
  - Rash generalised [None]
